FAERS Safety Report 21906632 (Version 3)
Quarter: 2024Q3

REPORT INFORMATION
  Report Type: Spontaneous
  Country: IT (occurrence: IT)
  Receive Date: 20230125
  Receipt Date: 20240701
  Transmission Date: 20241016
  Serious: Yes (Other)
  Sender: CELLTRION
  Company Number: IT-CELLTRION INC.-2023IT000511

PATIENT

DRUGS (13)
  1. RITUXIMAB [Suspect]
     Active Substance: RITUXIMAB
     Indication: Diffuse large B-cell lymphoma
     Dosage: (1ST SYSTEMIC TREATMENT, RITUXIMAB-M-CODOX-IVAC)
     Dates: start: 20210626, end: 20210929
  2. RITUXIMAB [Suspect]
     Active Substance: RITUXIMAB
     Dosage: 2ND LINE SYSTEMIC TREATMENT, RITUXIMAB-BENDAMUSTINE-POLATUZUMAB
     Dates: start: 20220412, end: 20220510
  3. RITUXIMAB [Suspect]
     Active Substance: RITUXIMAB
     Dosage: (2ND LINE SYSTEMIC TREATMENT, RITUXIMAB-BENDAMUSTINE-POLATUZUMAB)
     Dates: start: 20221104
  4. CYCLOPHOSPHAMIDE [Suspect]
     Active Substance: CYCLOPHOSPHAMIDE
     Indication: Diffuse large B-cell lymphoma
     Dosage: (1ST LINE SYSTEMIC TREATMENT, RITUXIMAB-M-CODOX-IVAC)
     Dates: start: 20210626, end: 20210929
  5. POLATUZUMAB VEDOTIN [Suspect]
     Active Substance: POLATUZUMAB VEDOTIN
     Indication: Diffuse large B-cell lymphoma
     Dosage: UNK (2ND LINE SYSTEMIC TREATMENT)
     Dates: start: 20220412, end: 20220510
  6. DOXORUBICIN [Suspect]
     Active Substance: DOXORUBICIN
     Indication: Diffuse large B-cell lymphoma
     Dosage: (1ST LINE SYSTEMIC TREATMENT, RITUXIMAB-M-CODOX-IVAC)
     Dates: start: 20210626, end: 20210929
  7. BENDAMUSTINE [Suspect]
     Active Substance: BENDAMUSTINE
     Indication: Diffuse large B-cell lymphoma
     Dosage: UNK
     Dates: start: 20220412, end: 20220510
  8. LENALIDOMIDE [Suspect]
     Active Substance: LENALIDOMIDE
     Indication: Diffuse large B-cell lymphoma
     Dosage: (4TH LINE SYSTEMIC TREATMENT, LENALIDOMIDE PLUS RITUXIMAB)
     Dates: start: 20221104
  9. ETOPOSIDE [Suspect]
     Active Substance: ETOPOSIDE
     Indication: Diffuse large B-cell lymphoma
     Dosage: (1ST LINE SYSTEMIC TREATMENT, RITUXIMAB-M-CODOX-IVAC)
     Dates: start: 20210626, end: 20210929
  10. VINCRISTINE [Suspect]
     Active Substance: VINCRISTINE
     Indication: Diffuse large B-cell lymphoma
     Dosage: (1ST LINE SYSTEMIC TREATMENT, RITUXIMAB-M-CODOX-IVAC)
     Dates: start: 20210626, end: 20210929
  11. METHOTREXATE [Suspect]
     Active Substance: METHOTREXATE
     Indication: Diffuse large B-cell lymphoma
     Dosage: (1ST LINE SYSTEMIC TREATMENT, RITUXIMAB-M-CODOX-IVAC)
     Dates: start: 20210626, end: 20210929
  12. CYTARABINE [Suspect]
     Active Substance: CYTARABINE
     Indication: Diffuse large B-cell lymphoma
     Dosage: (1ST LINE SYSTEMIC TREATMENT, RITUXIMAB-M-CODOX-IVAC)
     Dates: start: 20210626, end: 20210929
  13. IFOSFAMIDE [Suspect]
     Active Substance: IFOSFAMIDE
     Indication: Diffuse large B-cell lymphoma
     Dosage: (1ST LINE SYSTEMIC TREATMENT, RITUXIMAB-M-CODOX-IVAC)
     Dates: start: 20210626, end: 20210929

REACTIONS (3)
  - Diffuse large B-cell lymphoma [Unknown]
  - Disease progression [Unknown]
  - Product use issue [Unknown]
